FAERS Safety Report 20544490 (Version 5)
Quarter: 2023Q4

REPORT INFORMATION
  Report Type: Spontaneous
  Country: US (occurrence: US)
  Receive Date: 20220303
  Receipt Date: 20231221
  Transmission Date: 20240109
  Serious: Yes (Disabling, Other)
  Sender: FDA-Public Use
  Company Number: US-ORGANON-O2203USA000165

PATIENT
  Sex: Female
  Weight: 106.58 kg

DRUGS (2)
  1. SINGULAIR [Suspect]
     Active Substance: MONTELUKAST SODIUM
     Indication: Asthma
     Dosage: UNK
     Route: 048
     Dates: start: 2006, end: 2012
  2. SINGULAIR [Suspect]
     Active Substance: MONTELUKAST SODIUM
     Dosage: TAKE 1 TABLET BY MOUTH DAILY AT BEDTIME.
     Route: 048
     Dates: start: 20161206

REACTIONS (18)
  - Neuropsychological symptoms [Not Recovered/Not Resolved]
  - Obsessive-compulsive disorder [Not Recovered/Not Resolved]
  - Anxiety [Not Recovered/Not Resolved]
  - Tic [Not Recovered/Not Resolved]
  - Tremor [Not Recovered/Not Resolved]
  - Depression [Not Recovered/Not Resolved]
  - Suicidal ideation [Not Recovered/Not Resolved]
  - Major depression [Unknown]
  - Obsessive thoughts [Not Recovered/Not Resolved]
  - Crying [Not Recovered/Not Resolved]
  - Decreased interest [Not Recovered/Not Resolved]
  - Insomnia [Not Recovered/Not Resolved]
  - Panic attack [Not Recovered/Not Resolved]
  - Dissociation [Not Recovered/Not Resolved]
  - Brain fog [Not Recovered/Not Resolved]
  - Anger [Not Recovered/Not Resolved]
  - Irritability [Not Recovered/Not Resolved]
  - Pain [Unknown]

NARRATIVE: CASE EVENT DATE: 20060101
